FAERS Safety Report 7085868-5 (Version None)
Quarter: 2010Q4

REPORT INFORMATION
  Report Type: 
  Country: None (occurrence: None)
  Receive Date: 20101105
  Receipt Date: 20101027
  Transmission Date: 20110411
  Serious: Yes (Other)
  Sender: FDA-Public Use
  Company Number: JP-ROCHE-738284

PATIENT
  Age: 60 Year
  Sex: Female

DRUGS (1)
  1. XELODA [Suspect]
     Indication: COLON CANCER
     Dosage: DRUG NAME XELODA 300
     Route: 048

REACTIONS (3)
  - DEEP VEIN THROMBOSIS [None]
  - ILIAC VEIN OCCLUSION [None]
  - RENAL IMPAIRMENT [None]
